FAERS Safety Report 4650687-3 (Version None)
Quarter: 2005Q2

REPORT INFORMATION
  Report Type: 
  Country: None (occurrence: None)
  Receive Date: 20050429
  Receipt Date: 20050429
  Transmission Date: 20051028
  Serious: Yes (Life-Threatening, Hospitalization)
  Sender: FDA-Public Use
  Company Number: None

PATIENT
  Age: 46 Year
  Sex: Female

DRUGS (1)
  1. ISONIAZID [Suspect]
     Indication: TUBERCULOSIS
     Dates: start: 20040701, end: 20050224

REACTIONS (14)
  - ABDOMINAL DISTENSION [None]
  - ABDOMINAL TENDERNESS [None]
  - ANTI-HBS ANTIBODY POSITIVE [None]
  - ASCITES [None]
  - COAGULOPATHY [None]
  - CONSTIPATION [None]
  - HEPATITIS B ANTIBODY POSITIVE [None]
  - HEPATOMEGALY [None]
  - HYPOGLYCAEMIA [None]
  - JAUNDICE [None]
  - NAUSEA [None]
  - OCULAR ICTERUS [None]
  - OEDEMA PERIPHERAL [None]
  - VOMITING [None]
